FAERS Safety Report 24389963 (Version 3)
Quarter: 2024Q4

REPORT INFORMATION
  Report Type: Report from Study
  Country: US (occurrence: US)
  Receive Date: 20241003
  Receipt Date: 20241010
  Transmission Date: 20250115
  Serious: Yes (Hospitalization, Other)
  Sender: ABBVIE
  Company Number: US-ABBVIE-5947657

PATIENT
  Age: 65 Year
  Sex: Male

DRUGS (2)
  1. SKYRIZI [Suspect]
     Active Substance: RISANKIZUMAB-RZAA
     Indication: Psoriatic arthropathy
     Dosage: UNKNOWN
     Route: 058
     Dates: start: 20230929
  2. COVID-19 VACCINE NOS [Suspect]
     Active Substance: COVID-19 VACCINE
     Indication: Product used for unknown indication
     Route: 065

REACTIONS (6)
  - Gastrointestinal haemorrhage [Unknown]
  - Dizziness [Recovered/Resolved]
  - Vision blurred [Recovered/Resolved]
  - Asthenia [Recovering/Resolving]
  - Haemoglobin decreased [Recovering/Resolving]
  - Eczema [Unknown]

NARRATIVE: CASE EVENT DATE: 20240901
